FAERS Safety Report 11153279 (Version 1)
Quarter: 2015Q2

REPORT INFORMATION
  Report Type: Report from Study
  Country: GB (occurrence: GB)
  Receive Date: 20150601
  Receipt Date: 20150601
  Transmission Date: 20150821
  Serious: Yes (Life-Threatening, Hospitalization)
  Sender: FDA-Public Use
  Company Number: PHHY2015GB061660

PATIENT
  Age: 68 Year
  Sex: Male
  Weight: 67.7 kg

DRUGS (8)
  1. EPIRUBICIN [Suspect]
     Active Substance: EPIRUBICIN
     Indication: GASTRIC CANCER
     Dosage: 64 MG, UNK
     Route: 042
     Dates: start: 20071031
  2. XELODA [Suspect]
     Active Substance: CAPECITABINE
     Indication: ADENOCARCINOMA GASTRIC
     Dosage: TREATMENT REDUCED AND DELAYED, MOST RECENT DOSE TAKEN ON 15 JUNE 2008
     Route: 048
     Dates: start: 20071031
  3. CARBOPLATIN. [Suspect]
     Active Substance: CARBOPLATIN
     Dosage: 530 MG, UNK
     Route: 042
     Dates: start: 20080410
  4. EPIRUBICIN [Suspect]
     Active Substance: EPIRUBICIN
     Dosage: 64 MG, UNK
     Route: 042
     Dates: start: 20071031
  5. AVASTIN [Suspect]
     Active Substance: BEVACIZUMAB
     Indication: GASTRIC CANCER
     Dosage: 600 MG, UNK, MOST RECENET DOSE ON 29 MAY 2008
     Route: 042
     Dates: start: 20071031
  6. CARBOPLATIN. [Suspect]
     Active Substance: CARBOPLATIN
     Indication: PRODUCT USED FOR UNKNOWN INDICATION
     Dosage: 530 MG, UNK
     Route: 042
     Dates: start: 20080410
  7. XELODA [Suspect]
     Active Substance: CAPECITABINE
     Dosage: 2150 MG, UNK
     Route: 048
  8. CISPLATIN. [Suspect]
     Active Substance: CISPLATIN
     Indication: GASTRIC CANCER
     Dosage: 360 MG, UNK, MOST RECENET DOSE ON 29 MAY 2008
     Route: 042
     Dates: start: 20071031

REACTIONS (2)
  - Neutropenic sepsis [Recovered/Resolved]
  - Febrile neutropenia [Recovered/Resolved]

NARRATIVE: CASE EVENT DATE: 20080425
